FAERS Safety Report 17019506 (Version 1)
Quarter: 2019Q4

REPORT INFORMATION
  Report Type: Report from Study
  Country: US (occurrence: US)
  Receive Date: 20191112
  Receipt Date: 20191112
  Transmission Date: 20200122
  Serious: Yes (Hospitalization, Other)
  Sender: FDA-Public Use
  Company Number: US-ROCHE-2377076

PATIENT
  Sex: Female
  Weight: 58.11 kg

DRUGS (28)
  1. IBUPROFEN. [Concomitant]
     Active Substance: IBUPROFEN
     Indication: ARTHRITIS
     Dosage: UNKNOWN DOSE TAKEN AS NEEDED ;ONGOING: YES
     Route: 065
     Dates: start: 2014
  2. BENADRYL [Concomitant]
     Active Substance: DIPHENHYDRAMINE HYDROCHLORIDE
     Dosage: UNKNOWN DOSE FOR ALLERGIES, HEADACHE AND SLEEP ;ONGOING: YES
     Route: 048
  3. ESTRADIOL. [Concomitant]
     Active Substance: ESTRADIOL
     Indication: MENOPAUSE
     Route: 048
  4. BENADRYL [Concomitant]
     Active Substance: DIPHENHYDRAMINE HYDROCHLORIDE
     Indication: PREMEDICATION
     Route: 048
     Dates: start: 20190627
  5. BACLOFEN. [Concomitant]
     Active Substance: BACLOFEN
     Indication: MULTIPLE SCLEROSIS
     Route: 048
     Dates: start: 1994
  6. ADDERALL [Concomitant]
     Active Substance: AMPHETAMINE ASPARTATE\AMPHETAMINE SULFATE\DEXTROAMPHETAMINE SACCHARATE\DEXTROAMPHETAMINE SULFATE
     Indication: FATIGUE
     Route: 048
     Dates: start: 201905
  7. AMLODIPINE [Concomitant]
     Active Substance: AMLODIPINE BESYLATE
     Indication: HYPERTENSION
     Route: 048
  8. NITROFURANTOIN. [Concomitant]
     Active Substance: NITROFURANTOIN
     Route: 065
     Dates: start: 1999
  9. KLONOPIN [Suspect]
     Active Substance: CLONAZEPAM
     Indication: BLADDER SPASM
     Dosage: START DATE: /MAR/1994?ONGOING: YES
     Route: 048
  10. ESTRADIOL. [Concomitant]
     Active Substance: ESTRADIOL
     Indication: BLADDER SPASM
  11. VENLAFAXINE [Concomitant]
     Active Substance: VENLAFAXINE HYDROCHLORIDE
     Route: 048
  12. IBUPROFEN. [Concomitant]
     Active Substance: IBUPROFEN
     Indication: BACK PAIN
  13. NEURONTIN [Concomitant]
     Active Substance: GABAPENTIN
     Indication: PAIN
     Dosage: UNKNOWN DOSE, SCHEDULE ;ONGOING: YES
     Route: 048
     Dates: start: 2005
  14. SOLU-MEDROL [Concomitant]
     Active Substance: METHYLPREDNISOLONE SODIUM SUCCINATE
     Indication: VISUAL IMPAIRMENT
     Dosage: ON MONTHLY TAPER 100 MG PER MONTH ;ONGOING: NO
     Route: 065
     Dates: start: 201811, end: 20190806
  15. SOLU-MEDROL [Concomitant]
     Active Substance: METHYLPREDNISOLONE SODIUM SUCCINATE
     Route: 065
     Dates: start: 1999, end: 201811
  16. OCREVUS [Suspect]
     Active Substance: OCRELIZUMAB
     Indication: PRIMARY PROGRESSIVE MULTIPLE SCLEROSIS
     Dosage: START DATE: 27/JUN/2019?UNKNOWN DOSE SCHEDULE ;ONGOING: YES
     Route: 042
  17. KLONOPIN [Suspect]
     Active Substance: CLONAZEPAM
     Route: 048
  18. AMPYRA [Concomitant]
     Active Substance: DALFAMPRIDINE
     Indication: PRIMARY PROGRESSIVE MULTIPLE SCLEROSIS
     Dosage: SWITCHED TO GENERIC IN 2018 ;ONGOING: YES
     Route: 048
     Dates: start: 2011
  19. BACLOFEN. [Concomitant]
     Active Substance: BACLOFEN
     Route: 065
     Dates: start: 1994
  20. RITALIN [Concomitant]
     Active Substance: METHYLPHENIDATE HYDROCHLORIDE
     Indication: FATIGUE
     Route: 048
     Dates: start: 201903, end: 201906
  21. KLONOPIN [Suspect]
     Active Substance: CLONAZEPAM
     Indication: MUSCLE SPASMS
     Dosage: START DATE: //2018 ?ONGOING: NO
     Route: 048
     Dates: end: 2018
  22. VESICARE [Concomitant]
     Active Substance: SOLIFENACIN SUCCINATE
     Indication: BLADDER SPASM
     Route: 048
  23. GLYCERIN [GLYCEROL] [Concomitant]
     Indication: CONSTIPATION
     Route: 054
  24. TYLENOL EXTRA STRENGTH [Concomitant]
     Active Substance: ACETAMINOPHEN
     Indication: ARTHRITIS
     Dosage: UNKNOWN DOSE AND SCHEDULE TAKEN AS NEEDED ;ONGOING: YES
     Route: 065
     Dates: start: 2014
  25. TYLENOL EXTRA STRENGTH [Concomitant]
     Active Substance: ACETAMINOPHEN
     Indication: BACK PAIN
  26. TYLENOL [Concomitant]
     Active Substance: ACETAMINOPHEN
     Indication: PREMEDICATION
  27. SOLU-MEDROL [Concomitant]
     Active Substance: METHYLPREDNISOLONE SODIUM SUCCINATE
     Dosage: GIVEN AS PRE-MEDICATION BEFORE OCREVUS ;ONGOING: YES
     Route: 065
     Dates: start: 20190627
  28. AMPYRA [Concomitant]
     Active Substance: DALFAMPRIDINE
     Route: 065

REACTIONS (14)
  - Diplopia [Not Recovered/Not Resolved]
  - Drug resistance [Unknown]
  - Spondylitis [Not Recovered/Not Resolved]
  - Cystitis [Recovered/Resolved]
  - Osteoarthritis [Not Recovered/Not Resolved]
  - Cataract [Recovered/Resolved]
  - Eye movement disorder [Recovering/Resolving]
  - Visual impairment [Recovered/Resolved with Sequelae]
  - Influenza like illness [Not Recovered/Not Resolved]
  - Bladder spasm [Recovered/Resolved]
  - Primary progressive multiple sclerosis [Recovering/Resolving]
  - Joint injury [Recovered/Resolved]
  - Eye pain [Recovered/Resolved]
  - Weight decreased [Not Recovered/Not Resolved]

NARRATIVE: CASE EVENT DATE: 1994
